FAERS Safety Report 7079363-7 (Version None)
Quarter: 2010Q4

REPORT INFORMATION
  Report Type: 
  Country: None (occurrence: None)
  Receive Date: 20101102
  Receipt Date: 20101027
  Transmission Date: 20110411
  Serious: Yes (Hospitalization, Other)
  Sender: FDA-Public Use
  Company Number: KR-ABBOTT-10P-090-0661272-00

PATIENT
  Age: 49 Year
  Sex: Male

DRUGS (11)
  1. HUMIRA [Suspect]
     Indication: PSORIATIC ARTHROPATHY
     Route: 058
     Dates: start: 20100525, end: 20100803
  2. MTX [Concomitant]
     Indication: PSORIATIC ARTHROPATHY
  3. HYDROXYCHLOROQUINE [Concomitant]
     Indication: PSORIATIC ARTHROPATHY
  4. SOLETON [Concomitant]
     Indication: PSORIATIC ARTHROPATHY
     Route: 048
     Dates: start: 20090903, end: 20101012
  5. ISONIAZID [Concomitant]
     Indication: LATENT TUBERCULOSIS
     Route: 048
     Dates: start: 20100504, end: 20100804
  6. MUCOSTA [Concomitant]
     Indication: GASTRIC ULCER
     Route: 048
     Dates: start: 20090903, end: 20101012
  7. SOLONDO [Concomitant]
     Indication: RHEUMATOID ARTHRITIS
     Route: 048
     Dates: start: 20100903, end: 20101012
  8. PHARMA FOLIC ACID TAB [Concomitant]
     Indication: ADVERSE DRUG REACTION
     Dates: start: 20100903, end: 20101012
  9. YUHAN METHOTREXATE TAB [Concomitant]
     Indication: PSORIATIC ARTHROPATHY
     Route: 048
     Dates: start: 20100210, end: 20100803
  10. ACTONEL [Concomitant]
     Indication: OSTEOPOROSIS
     Route: 048
     Dates: start: 20090917, end: 20101009
  11. ADCAL TABLET [Concomitant]
     Indication: OSTEOPOROSIS
     Route: 048
     Dates: start: 20090917, end: 20100504

REACTIONS (2)
  - LUNG DISORDER [None]
  - PNEUMONIA CRYPTOCOCCAL [None]
